FAERS Safety Report 20376228 (Version 1)
Quarter: 2022Q1

REPORT INFORMATION
  Report Type: Report from Study
  Country: IN (occurrence: IN)
  Receive Date: 20220125
  Receipt Date: 20220125
  Transmission Date: 20220423
  Serious: Yes (Hospitalization)
  Sender: FDA-Public Use
  Company Number: IN-PFIZER INC-202200037366

PATIENT
  Age: 47 Year
  Sex: Female
  Weight: 42 kg

DRUGS (13)
  1. LORBRENA [Suspect]
     Active Substance: LORLATINIB
     Indication: Lung neoplasm malignant
     Dosage: 100 MG, CYCLIC (4 TABS 25MG DAILY
     Route: 048
     Dates: start: 20210409, end: 20210507
  2. LORBRENA [Suspect]
     Active Substance: LORLATINIB
     Indication: Non-small cell lung cancer
     Dosage: 100 MG, CYCLIC (4 TABS 25MG DAILY)
     Route: 048
     Dates: start: 20210508, end: 20210603
  3. LORBRENA [Suspect]
     Active Substance: LORLATINIB
     Dosage: 100 MG, CYCLIC (4TABS  25MG DAILY)
     Route: 048
     Dates: start: 20210604, end: 20210702
  4. LORBRENA [Suspect]
     Active Substance: LORLATINIB
     Dosage: 100 MG, CYCLIC (4TABS 25MG DAILY)
     Route: 048
     Dates: start: 20210703, end: 20210729
  5. LORBRENA [Suspect]
     Active Substance: LORLATINIB
     Dosage: 100 MG, CYCLIC (4TABS  25MG DAILY)
     Route: 048
     Dates: start: 20210730, end: 20210825
  6. LORBRENA [Suspect]
     Active Substance: LORLATINIB
     Dosage: 100 MG, CYCLIC (4TAB 25MG DAILY)
     Route: 048
     Dates: start: 20210826, end: 20210924
  7. LORBRENA [Suspect]
     Active Substance: LORLATINIB
     Dosage: 100 MG, CYCLIC (4TABS 25MG DAILY)
     Route: 048
     Dates: start: 20210925, end: 20211021
  8. LORBRENA [Suspect]
     Active Substance: LORLATINIB
     Dosage: 100 MG, CYCLIC (4TABS 25MG DAILY)
     Route: 048
     Dates: start: 20211022, end: 20211119
  9. LORBRENA [Suspect]
     Active Substance: LORLATINIB
     Dosage: 100 MG, CYCLIC (4TABS 25MG DAILY)
     Route: 048
     Dates: start: 20211120, end: 20211216
  10. LORBRENA [Suspect]
     Active Substance: LORLATINIB
     Dosage: 100 MG, CYCLIC (4TABS 25MG DAILY)
     Route: 048
     Dates: start: 20211217, end: 20220110
  11. ROSUVEL [Concomitant]
     Indication: Hyperlipidaemia
     Dosage: 10 MG, OD
     Route: 048
     Dates: start: 20210616
  12. INAPURE [Concomitant]
     Indication: Sinus tachycardia
     Dosage: 5 MG, OD
     Route: 048
     Dates: start: 20210518
  13. PROLOMET XL [Concomitant]
     Indication: Sinus tachycardia
     Dosage: 50 MG, OD
     Route: 048
     Dates: start: 20210726

REACTIONS (1)
  - Lower respiratory tract infection [Recovered/Resolved]

NARRATIVE: CASE EVENT DATE: 20220110
